FAERS Safety Report 8852704 (Version 2)
Quarter: 2012Q4

REPORT INFORMATION
  Report Type: 
  Country: US (occurrence: US)
  Receive Date: 20121022
  Receipt Date: 20121114
  Transmission Date: 20130627
  Serious: No
  Sender: FDA-Public Use
  Company Number: US-ASTRAZENECA-2012SE76777

PATIENT
  Age: 28 Year
  Sex: Female

DRUGS (4)
  1. SYMBICORT PMDI [Suspect]
     Indication: ASTHMA
     Dosage: 160/4.5 MCG, TWO TIMES A DAY
     Route: 055
  2. SYMBICORT PMDI [Suspect]
     Indication: ASTHMA
     Dosage: 160/4.5 MCG, ONE DOSE
     Route: 055
     Dates: start: 20121025
  3. ANTI-HISTAMINES [Concomitant]
  4. NASONEX [Concomitant]

REACTIONS (2)
  - Asthma [Unknown]
  - Intentional drug misuse [Unknown]
